FAERS Safety Report 25992755 (Version 2)
Quarter: 2025Q4

REPORT INFORMATION
  Report Type: Spontaneous
  Country: JP (occurrence: JP)
  Receive Date: 20251103
  Receipt Date: 20251230
  Transmission Date: 20260118
  Serious: Yes (Hospitalization)
  Sender: MERCK SHARP & DOHME LLC
  Company Number: JP-009507513-2344513

PATIENT
  Age: 76 Year
  Sex: Male

DRUGS (1)
  1. KEYTRUDA [Suspect]
     Active Substance: PEMBROLIZUMAB
     Indication: Lung adenocarcinoma
     Dosage: 7 COURSES
     Route: 041

REACTIONS (5)
  - Cytokine storm [Recovering/Resolving]
  - C-reactive protein increased [Unknown]
  - Pyrexia [Unknown]
  - Interleukin level increased [Unknown]
  - Alanine aminotransferase increased [Unknown]
